FAERS Safety Report 21984205 (Version 1)
Quarter: 2023Q1

REPORT INFORMATION
  Report Type: Spontaneous
  Country: FR (occurrence: None)
  Receive Date: 20230213
  Receipt Date: 20230213
  Transmission Date: 20230417
  Serious: Yes (Hospitalization, Other)
  Sender: FDA-Public Use
  Company Number: FR-MICRO LABS LIMITED-ML2023-00708

PATIENT
  Age: 46 Year
  Sex: Female
  Weight: 70 kg

DRUGS (1)
  1. GLIMEPIRIDE [Suspect]
     Active Substance: GLIMEPIRIDE

REACTIONS (7)
  - Agitation [Unknown]
  - Mydriasis [Unknown]
  - Vomiting [Unknown]
  - Hypoglycaemia [Unknown]
  - Seizure [Unknown]
  - Coma [Unknown]
  - Intentional overdose [Unknown]
